FAERS Safety Report 25096541 (Version 1)
Quarter: 2025Q1

REPORT INFORMATION
  Report Type: Report from Study
  Country: CA (occurrence: CA)
  Receive Date: 20250319
  Receipt Date: 20250319
  Transmission Date: 20250409
  Serious: Yes (Other)
  Sender: ABBVIE
  Company Number: CA-ABBVIE-6175595

PATIENT
  Age: 56 Year
  Sex: Female
  Weight: 81.6 kg

DRUGS (2)
  1. RINVOQ [Suspect]
     Active Substance: UPADACITINIB
     Indication: Crohn^s disease
     Route: 048
     Dates: start: 2020
  2. PREDNISONE [Concomitant]
     Active Substance: PREDNISONE
     Indication: Crohn^s disease

REACTIONS (13)
  - Pulmonary thrombosis [Unknown]
  - Malaise [Unknown]
  - Visual impairment [Unknown]
  - Central nervous system lesion [Unknown]
  - Memory impairment [Unknown]
  - Fatigue [Unknown]
  - Headache [Unknown]
  - Deafness [Unknown]
  - Arthralgia [Unknown]
  - Abdominal pain [Unknown]
  - Impaired work ability [Unknown]
  - Social problem [Unknown]
  - Diarrhoea [Unknown]

NARRATIVE: CASE EVENT DATE: 20250101
